FAERS Safety Report 19592687 (Version 1)
Quarter: 2021Q3

REPORT INFORMATION
  Report Type: Spontaneous
  Country: CH (occurrence: CH)
  Receive Date: 20210722
  Receipt Date: 20210722
  Transmission Date: 20211014
  Serious: Yes (Hospitalization, Other)
  Sender: FDA-Public Use
  Company Number: CH-APOTEX-2021AP020140

PATIENT
  Age: 45 Year
  Sex: Female

DRUGS (8)
  1. PALIPERIDONE. [Interacting]
     Active Substance: PALIPERIDONE
     Indication: MAJOR DEPRESSION
     Dosage: 6 MILLIGRAM
     Route: 065
  2. METHADONE [Interacting]
     Active Substance: METHADONE HYDROCHLORIDE
     Indication: DRUG DEPENDENCE
     Dosage: 7.5 MILLIGRAM
     Route: 065
  3. PREGABALIN. [Interacting]
     Active Substance: PREGABALIN
     Indication: PRODUCT USED FOR UNKNOWN INDICATION
     Dosage: 750 MILLIGRAM
     Route: 065
  4. PAROXETINE. [Suspect]
     Active Substance: PAROXETINE
     Indication: MAJOR DEPRESSION
     Dosage: 50 MILLIGRAM
     Route: 065
  5. PAROXETINE. [Interacting]
     Active Substance: PAROXETINE
     Dosage: 10 MILLIGRAM
     Route: 065
  6. BUPROPION. [Interacting]
     Active Substance: BUPROPION
     Indication: MAJOR DEPRESSION
     Dosage: 450 MILLIGRAM
     Route: 065
  7. TRAZODONE [Interacting]
     Active Substance: TRAZODONE HYDROCHLORIDE
     Indication: MAJOR DEPRESSION
     Dosage: 50 MILLIGRAM
     Route: 065
  8. PREGABALIN. [Interacting]
     Active Substance: PREGABALIN
     Dosage: 700 MILLIGRAM
     Route: 065

REACTIONS (17)
  - Altered state of consciousness [Recovered/Resolved]
  - Depression [Recovered/Resolved]
  - Sedation [Recovered/Resolved]
  - Hyperhidrosis [Recovered/Resolved]
  - Myoclonus [Recovered/Resolved]
  - Tremor [Recovered/Resolved]
  - Pain [Recovered/Resolved]
  - Mental status changes [Recovered/Resolved]
  - Headache [Recovered/Resolved]
  - Serotonin syndrome [Recovered/Resolved]
  - Hypoxia [Recovered/Resolved]
  - Cognitive disorder [Recovered/Resolved]
  - Condition aggravated [Recovered/Resolved]
  - Drug interaction [Unknown]
  - Clonus [Recovered/Resolved]
  - Resting tremor [Recovered/Resolved]
  - Dyspnoea [Recovered/Resolved]
